FAERS Safety Report 6737779-X (Version None)
Quarter: 2010Q2

REPORT INFORMATION
  Report Type: 
  Country: None (occurrence: None)
  Receive Date: 20100521
  Receipt Date: 20100521
  Transmission Date: 20101027
  Serious: Yes (Disabling)
  Sender: FDA-Public Use
  Company Number: None

PATIENT
  Sex: Female

DRUGS (1)
  1. LUPRON DEPOT [Suspect]
     Indication: UTERINE LEIOMYOMA
     Dosage: 3.75MG MONTHLY INTRAMUSCULARLY
     Route: 030
     Dates: start: 20100401

REACTIONS (3)
  - DRUG EFFECT DECREASED [None]
  - IMPAIRED WORK ABILITY [None]
  - MUSCLE SPASMS [None]
